FAERS Safety Report 8235070-6 (Version None)
Quarter: 2012Q1

REPORT INFORMATION
  Report Type: 
  Country: None (occurrence: None)
  Receive Date: 20120326
  Receipt Date: 20120322
  Transmission Date: 20120608
  Serious: Yes (Other)
  Sender: FDA-Public Use
  Company Number: DE-GLAXOSMITHKLINE-D0074768A

PATIENT
  Sex: Female

DRUGS (4)
  1. BECLOMET NASAL [Concomitant]
     Route: 065
  2. FLUTICASONE PROPIONATE/SALMETEROL [Suspect]
     Indication: ASTHMA
     Dosage: 300MCG TWICE PER DAY
     Route: 055
     Dates: start: 20020101, end: 20120201
  3. LEVOTHYROXINE SODIUM [Concomitant]
     Route: 048
  4. BERODUAL [Concomitant]
     Route: 065

REACTIONS (9)
  - ALLERGIC OEDEMA [None]
  - HYPERSENSITIVITY [None]
  - PANIC ATTACK [None]
  - CARDIAC DISORDER [None]
  - PRURITUS [None]
  - DYSPHAGIA [None]
  - TACHYCARDIA [None]
  - ERYTHEMA [None]
  - VISUAL IMPAIRMENT [None]
